FAERS Safety Report 20904322 (Version 1)
Quarter: 2022Q2

REPORT INFORMATION
  Report Type: Spontaneous
  Country: CN (occurrence: None)
  Receive Date: 20220602
  Receipt Date: 20220602
  Transmission Date: 20220721
  Serious: Yes (Hospitalization)
  Sender: FDA-Public Use
  Company Number: CN-ROCHE-3105156

PATIENT
  Age: 36 Year
  Sex: Male
  Weight: 68 kg

DRUGS (7)
  1. BEVACIZUMAB [Suspect]
     Active Substance: BEVACIZUMAB
     Indication: Adenocarcinoma
     Route: 041
     Dates: start: 20210514
  2. FLUOROURACIL [Suspect]
     Active Substance: FLUOROURACIL
     Indication: Adenocarcinoma
     Route: 041
  3. IRINOTECAN HYDROCHLORIDE [Suspect]
     Active Substance: IRINOTECAN HYDROCHLORIDE
     Indication: Adenocarcinoma
     Route: 042
     Dates: start: 20210514
  4. COMPOUND DIISOPROPYLAMINE DICHLOROACETATE INJECTION [Concomitant]
  5. THALIDOMIDE [Concomitant]
     Active Substance: THALIDOMIDE
     Route: 048
     Dates: start: 20210514
  6. LEUCOVORIN CALCIUM [Concomitant]
     Active Substance: LEUCOVORIN CALCIUM
     Indication: Chemotherapy
     Route: 041
     Dates: start: 20210514
  7. OMEPRAZOLE SODIUM [Concomitant]
     Active Substance: OMEPRAZOLE SODIUM
     Indication: Organ preservation
     Route: 041
     Dates: start: 20210514

REACTIONS (1)
  - Myelosuppression [Unknown]

NARRATIVE: CASE EVENT DATE: 20210516
